FAERS Safety Report 6045340-8 (Version None)
Quarter: 2009Q1

REPORT INFORMATION
  Report Type: 
  Country: None (occurrence: None)
  Receive Date: 20090121
  Receipt Date: 20090112
  Transmission Date: 20090719
  Serious: Yes (Hospitalization, Other)
  Sender: FDA-Public Use
  Company Number: NL-BAYER-200812379GPV

PATIENT
  Age: 51 Year
  Sex: Female
  Weight: 62 kg

DRUGS (11)
  1. NEXAVAR [Suspect]
     Indication: HEPATIC NEOPLASM MALIGNANT
     Dosage: TOTAL DAILY DOSE: 400 MG  UNIT DOSE: 200 MG
     Route: 048
     Dates: start: 20080701, end: 20080701
  2. NEXAVAR [Suspect]
     Dosage: TOTAL DAILY DOSE: 400 MG  UNIT DOSE: 200 MG
     Route: 048
     Dates: start: 20080723, end: 20080725
  3. NEXAVAR [Suspect]
     Dosage: TOTAL DAILY DOSE: 200 MG  UNIT DOSE: 200 MG
     Route: 048
     Dates: start: 20080818
  4. NEXAVAR [Suspect]
     Route: 048
     Dates: start: 20080101, end: 20080214
  5. NEXAVAR [Suspect]
     Dosage: UNIT DOSE: 200 MG
     Route: 048
     Dates: start: 20080214, end: 20080312
  6. NEXAVAR [Suspect]
     Route: 048
     Dates: start: 20080312, end: 20080320
  7. NEXAVAR [Suspect]
     Dosage: UNIT DOSE: 200 MG
     Route: 048
     Dates: start: 20080320, end: 20080401
  8. NEXAVAR [Suspect]
     Dosage: UNIT DOSE: 200 MG
     Route: 048
     Dates: start: 20080401, end: 20080410
  9. NEXAVAR [Suspect]
     Dosage: UNIT DOSE: 200 MG
     Route: 048
     Dates: start: 20080414, end: 20080501
  10. NEXAVAR [Suspect]
     Dosage: UNIT DOSE: 200 MG
     Route: 048
     Dates: start: 20080501
  11. NEXAVAR [Suspect]
     Route: 048
     Dates: start: 20081110

REACTIONS (29)
  - ABDOMINAL PAIN [None]
  - ABDOMINAL PAIN UPPER [None]
  - ALOPECIA [None]
  - AMENORRHOEA [None]
  - ANOREXIA [None]
  - BLISTER [None]
  - DEHYDRATION [None]
  - DIARRHOEA [None]
  - DRY SKIN [None]
  - DYSPHONIA [None]
  - DYSPNOEA [None]
  - ERYTHEMA [None]
  - FATIGUE [None]
  - GASTRIC DISORDER [None]
  - HYPERAESTHESIA [None]
  - LIVER TRANSPLANT REJECTION [None]
  - LUNG INFECTION [None]
  - MALAISE [None]
  - MENORRHAGIA [None]
  - NASOPHARYNGITIS [None]
  - NAUSEA [None]
  - NEOPLASM PROGRESSION [None]
  - PARAESTHESIA ORAL [None]
  - PULMONARY MYCOSIS [None]
  - RASH VESICULAR [None]
  - SKIN BURNING SENSATION [None]
  - SURGERY [None]
  - TONGUE BLISTERING [None]
  - WEIGHT DECREASED [None]
